FAERS Safety Report 7190269-5 (Version None)
Quarter: 2010Q4

REPORT INFORMATION
  Report Type: 
  Country: None (occurrence: None)
  Receive Date: 20101223
  Receipt Date: 20101217
  Transmission Date: 20110411
  Serious: Yes (Hospitalization)
  Sender: FDA-Public Use
  Company Number: DE-PFIZER INC-2010175281

PATIENT
  Sex: Female

DRUGS (9)
  1. IRINOTECAN HCL [Suspect]
     Indication: COLORECTAL CANCER METASTATIC
     Dosage: 288 MG, EVERY TWO WEEKS
     Route: 042
     Dates: start: 20101116
  2. ERBITUX [Suspect]
     Indication: COLORECTAL CANCER METASTATIC
     Dosage: 640 MG
     Route: 042
     Dates: start: 20101116
  3. ERBITUX [Suspect]
     Dosage: 400 MG, WEEKLY
     Route: 042
  4. FLUOROURACIL [Suspect]
     Indication: COLORECTAL CANCER METASTATIC
     Dosage: 640 MG, EVERY TWO WEEKS
     Route: 040
     Dates: start: 20101116
  5. FLUOROURACIL [Suspect]
     Dosage: 3840 MG, EVERY TWO WEEKS
     Route: 042
     Dates: start: 20101116
  6. FOLINIC ACID [Suspect]
     Indication: COLORECTAL CANCER METASTATIC
     Dosage: 640 MG, EVERY TWO WEEKS
     Route: 042
     Dates: start: 20101116
  7. KEVATRIL [Concomitant]
     Dosage: 1 MG, EVERY TWO WEEKS
     Route: 042
     Dates: start: 20101116
  8. DEXAMETHASONE [Concomitant]
     Dosage: 8 MG, EVERY TWO WEEKS
     Route: 042
     Dates: start: 20101116
  9. TAVEGIL [Concomitant]
     Dosage: WEEKLY
     Route: 042
     Dates: start: 20101116

REACTIONS (1)
  - GENERAL PHYSICAL HEALTH DETERIORATION [None]
